FAERS Safety Report 12010242 (Version 18)
Quarter: 2022Q2

REPORT INFORMATION
  Report Type: Report from Study
  Country: JP (occurrence: JP)
  Receive Date: 20160205
  Receipt Date: 20220624
  Transmission Date: 20220720
  Serious: Yes (Hospitalization, Disabling, Other)
  Sender: FDA-Public Use
  Company Number: JP-GLAXOSMITHKLINE-JP2016JPN012091

PATIENT

DRUGS (52)
  1. DOLUTEGRAVIR [Suspect]
     Active Substance: DOLUTEGRAVIR
     Indication: HIV infection
     Dosage: 50 MG, 1D
     Route: 048
     Dates: start: 20140625, end: 20141225
  2. DOLUTEGRAVIR [Suspect]
     Active Substance: DOLUTEGRAVIR
     Dosage: 50 MG, 1D
     Route: 048
     Dates: start: 20150112, end: 20170314
  3. DOLUTEGRAVIR [Suspect]
     Active Substance: DOLUTEGRAVIR
     Dosage: 50 MG, 1D
     Route: 048
     Dates: start: 20190213, end: 20190924
  4. ABACAVIR SULFATE\DOLUTEGRAVIR SODIUM\LAMIVUDINE [Suspect]
     Active Substance: ABACAVIR SULFATE\DOLUTEGRAVIR SODIUM\LAMIVUDINE
     Indication: HIV infection
     Dosage: 1 DF, 1D
     Route: 048
     Dates: start: 20170315, end: 20181113
  5. ABACAVIR SULFATE\DOLUTEGRAVIR SODIUM\LAMIVUDINE [Suspect]
     Active Substance: ABACAVIR SULFATE\DOLUTEGRAVIR SODIUM\LAMIVUDINE
     Dosage: 1 DF, 1D
     Route: 048
     Dates: start: 20190109, end: 20190212
  6. EPIVIR [Suspect]
     Active Substance: LAMIVUDINE
     Indication: HIV infection
     Dosage: 150 MG, BID
     Route: 048
     Dates: start: 20150123, end: 20170314
  7. ZIAGEN [Suspect]
     Active Substance: ABACAVIR SULFATE
     Indication: HIV infection
     Dosage: 300 MG, BID
     Route: 048
     Dates: start: 20150123, end: 20170314
  8. LEXIVA [Suspect]
     Active Substance: FOSAMPRENAVIR CALCIUM
     Indication: HIV infection
     Dosage: 1400 MG, BID
     Route: 048
     Dates: start: 20140317, end: 20140624
  9. MARAVIROC [Suspect]
     Active Substance: MARAVIROC
     Indication: HIV infection
     Dosage: 600 MG, 1D
     Route: 048
     Dates: start: 20140816, end: 20141225
  10. MARAVIROC [Suspect]
     Active Substance: MARAVIROC
     Dosage: 600 MG, 1D
     Route: 048
     Dates: start: 20150102, end: 20150121
  11. EPZICOM [Suspect]
     Active Substance: ABACAVIR SULFATE\LAMIVUDINE
     Indication: HIV infection
     Dosage: 1 DF, 1D
     Route: 048
     Dates: start: 20141022, end: 20141210
  12. EPZICOM [Suspect]
     Active Substance: ABACAVIR SULFATE\LAMIVUDINE
     Dosage: 1 DF, 1D
     Route: 048
     Dates: start: 20181114, end: 20190108
  13. LEVOFLOXACIN [Suspect]
     Active Substance: LEVOFLOXACIN
     Indication: Mycobacterium avium complex infection
     Dosage: 500 MG, QD
     Route: 042
     Dates: start: 20140624, end: 20140908
  14. LEVOFLOXACIN [Suspect]
     Active Substance: LEVOFLOXACIN
     Dosage: 500 MG, QD
     Route: 042
     Dates: start: 20140909, end: 20140930
  15. LEVOFLOXACIN [Suspect]
     Active Substance: LEVOFLOXACIN
     Dosage: 500 MG, QD
     Route: 042
     Dates: start: 20141109, end: 20141221
  16. LEVOFLOXACIN [Suspect]
     Active Substance: LEVOFLOXACIN
     Dosage: 500 MG, QD
     Route: 042
     Dates: start: 20141222, end: 20150303
  17. PREDONINE [Suspect]
     Active Substance: PREDNISOLONE
     Indication: Mycobacterium avium complex infection
     Dosage: 30-60 MG, QD
     Route: 042
     Dates: start: 20140829, end: 20140919
  18. PREDONINE [Suspect]
     Active Substance: PREDNISOLONE
     Dosage: 50-60 MG, QD
     Route: 042
     Dates: start: 20150114, end: 20150120
  19. PREDONINE [Suspect]
     Active Substance: PREDNISOLONE
     Indication: Mycobacterium avium complex infection
     Dosage: 7.5-30 MG, QD
     Route: 048
     Dates: start: 20140920, end: 20141225
  20. PREDONINE [Suspect]
     Active Substance: PREDNISOLONE
     Dosage: 7.5-30MG, QD
     Route: 048
     Dates: start: 20150102, end: 20150113
  21. PREDONINE [Suspect]
     Active Substance: PREDNISOLONE
     Dosage: 27-40 MG, QD
     Route: 048
     Dates: start: 20150121, end: 20150407
  22. PREDONINE [Suspect]
     Active Substance: PREDNISOLONE
     Dosage: 25-26 MG, QD
     Route: 048
     Dates: start: 20150408, end: 20161102
  23. PREDONINE [Suspect]
     Active Substance: PREDNISOLONE
     Dosage: UNK
     Route: 048
  24. VALACYCLOVIR HYDROCHLORIDE [Suspect]
     Active Substance: VALACYCLOVIR HYDROCHLORIDE
     Indication: Retinal disorder
     Dosage: 1000 MG, QD
     Route: 048
     Dates: start: 20150219, end: 20161013
  25. ISENTRESS [Suspect]
     Active Substance: RALTEGRAVIR POTASSIUM
     Indication: HIV infection
     Dosage: 2 DF, 1D
     Route: 048
     Dates: start: 20181114, end: 20190108
  26. MYCOBUTIN [Suspect]
     Active Substance: RIFABUTIN
     Indication: Mycobacterium avium complex infection
     Dosage: 300 MG, QD
     Route: 048
     Dates: start: 20130521, end: 20140312
  27. MYCOBUTIN [Suspect]
     Active Substance: RIFABUTIN
     Dosage: 150 MG, QD
     Route: 048
     Dates: start: 20140407, end: 20140624
  28. MYCOBUTIN [Suspect]
     Active Substance: RIFABUTIN
     Dosage: 300 MG, QD
     Route: 048
     Dates: start: 20140625, end: 20190320
  29. TRUVADA [Suspect]
     Active Substance: EMTRICITABINE\TENOFOVIR DISOPROXIL FUMARATE
     Indication: HIV infection
     Dosage: 1 DF, 1D
     Route: 048
     Dates: start: 20130711, end: 20130929
  30. TRUVADA [Suspect]
     Active Substance: EMTRICITABINE\TENOFOVIR DISOPROXIL FUMARATE
     Dosage: 1 DF, 1D
     Route: 048
     Dates: start: 20131010, end: 20140312
  31. TRUVADA [Suspect]
     Active Substance: EMTRICITABINE\TENOFOVIR DISOPROXIL FUMARATE
     Dosage: 1 DF, 1D
     Route: 048
     Dates: start: 20140317, end: 20141021
  32. TRUVADA [Suspect]
     Active Substance: EMTRICITABINE\TENOFOVIR DISOPROXIL FUMARATE
     Dosage: 1 DF, 1D
     Route: 048
     Dates: start: 20141211, end: 20141225
  33. TRUVADA [Suspect]
     Active Substance: EMTRICITABINE\TENOFOVIR DISOPROXIL FUMARATE
     Dosage: 1 DF, 1D
     Route: 048
     Dates: start: 20150102, end: 20150122
  34. SULFAMETHOXAZOLE\TRIMETHOPRIM [Suspect]
     Active Substance: SULFAMETHOXAZOLE\TRIMETHOPRIM
     Indication: Cerebral toxoplasmosis
     Dosage: 2 DF, BID
     Route: 048
     Dates: start: 20140917, end: 20141221
  35. SULFAMETHOXAZOLE\TRIMETHOPRIM [Suspect]
     Active Substance: SULFAMETHOXAZOLE\TRIMETHOPRIM
     Dosage: 2 DF, BID
     Route: 048
     Dates: start: 20150313, end: 20161108
  36. EBUTOL [Suspect]
     Active Substance: ETHAMBUTOL HYDROCHLORIDE
     Indication: Mycobacterium avium complex infection
     Dosage: 750 MG, QD
     Route: 048
     Dates: start: 20140723, end: 20190320
  37. ATOVAQUONE [Concomitant]
     Active Substance: ATOVAQUONE
     Indication: Cerebral toxoplasmosis
     Dosage: 750 MG, BID
     Dates: start: 20140324, end: 20140723
  38. SULFAMETHOXAZOLE\TRIMETHOPRIM [Concomitant]
     Active Substance: SULFAMETHOXAZOLE\TRIMETHOPRIM
     Indication: Cerebral toxoplasmosis
     Dosage: 15 ML, BID
     Dates: start: 20140724, end: 20140916
  39. SULFAMETHOXAZOLE\TRIMETHOPRIM [Concomitant]
     Active Substance: SULFAMETHOXAZOLE\TRIMETHOPRIM
     Dosage: 10 ML, BID
     Dates: start: 20141222, end: 20150312
  40. CLARITHROMYCIN [Concomitant]
     Active Substance: CLARITHROMYCIN
     Indication: Mycobacterium avium complex infection
     Dosage: 400 MG, BID
     Dates: start: 20130515, end: 20140312
  41. CLARITHROMYCIN [Concomitant]
     Active Substance: CLARITHROMYCIN
     Dosage: 400 MG, BID
     Dates: start: 20140401, end: 20140722
  42. ISCOTIN [Concomitant]
     Active Substance: ISONIAZID
     Indication: Mycobacterium avium complex infection
     Dosage: 300 MG, QD
     Dates: start: 20140903, end: 20141109
  43. KANAMYCIN [Concomitant]
     Active Substance: KANAMYCIN A SULFATE
     Indication: Mycobacterium avium complex infection
     Dosage: 20 ML, QID
     Dates: start: 20140904, end: 20160901
  44. STREPTOMYCIN SULFATE [Concomitant]
     Active Substance: STREPTOMYCIN SULFATE
     Indication: Mycobacterium avium complex infection
     Dosage: 1 G, THREE TIMES A WEEK
     Dates: start: 20141007, end: 20150911
  45. STREPTOMYCIN SULFATE [Concomitant]
     Active Substance: STREPTOMYCIN SULFATE
     Dosage: 1 G, TWICE A WEEK
     Dates: start: 20150916, end: 20160728
  46. TRAMCET [Concomitant]
     Active Substance: ACETAMINOPHEN\TRAMADOL
     Indication: Mycobacterium avium complex infection
     Dosage: 1-2 DF, 2-4 TIMES A DAY
     Dates: start: 20140715, end: 20151225
  47. TRAMCET [Concomitant]
     Active Substance: ACETAMINOPHEN\TRAMADOL
     Dosage: 1-2 DF, 2-4 TIMES A DAY
     Dates: start: 20150102, end: 20150124
  48. AVELOX [Concomitant]
     Active Substance: MOXIFLOXACIN HYDROCHLORIDE
     Indication: Mycobacterium avium complex infection
     Dosage: 400 MG, QD
     Dates: start: 20150401, end: 20190320
  49. LULICONAZOLE [Concomitant]
     Active Substance: LULICONAZOLE
     Dosage: UNK
     Dates: start: 20171108, end: 20190703
  50. LUCONAC [Concomitant]
     Dosage: UNK
     Dates: start: 20171108, end: 20190402
  51. DESCOVY [Concomitant]
     Active Substance: EMTRICITABINE\TENOFOVIR ALAFENAMIDE FUMARATE
     Indication: HIV infection
     Dosage: 1 DF, 1D
     Dates: start: 20190213, end: 20190924
  52. BIKTARVY [Concomitant]
     Active Substance: BICTEGRAVIR SODIUM\EMTRICITABINE\TENOFOVIR ALAFENAMIDE FUMARATE
     Indication: HIV infection
     Dosage: 1 DF, 1D
     Dates: start: 20190925

REACTIONS (13)
  - Nausea [Recovering/Resolving]
  - Vomiting [Recovering/Resolving]
  - Depressive symptom [Recovering/Resolving]
  - Hepatic function abnormal [Recovered/Resolved]
  - Osteoporosis [Recovering/Resolving]
  - Leukopenia [Recovering/Resolving]
  - Spinal compression fracture [Recovering/Resolving]
  - Necrotising retinitis [Recovered/Resolved with Sequelae]
  - Plantar fasciitis [Recovering/Resolving]
  - Mycobacterium avium complex immune restoration disease [Recovered/Resolved]
  - Insomnia [Recovered/Resolved]
  - Abdominal discomfort [Recovered/Resolved]
  - Sleep disorder [Recovering/Resolving]

NARRATIVE: CASE EVENT DATE: 20140401
